FAERS Safety Report 18740885 (Version 2)
Quarter: 2021Q2

REPORT INFORMATION
  Report Type: Spontaneous
  Country: US (occurrence: US)
  Receive Date: 20210114
  Receipt Date: 20210610
  Transmission Date: 20210717
  Serious: No
  Sender: FDA-Public Use
  Company Number: US-PFIZER INC-2021018961

PATIENT
  Sex: Female

DRUGS (1)
  1. NICOTROL [Suspect]
     Active Substance: NICOTINE
     Dosage: 10 MG, 2X/DAY (EVERY 12 HOURS)

REACTIONS (2)
  - Chronic obstructive pulmonary disease [Unknown]
  - Off label use [Unknown]
